FAERS Safety Report 21571953 (Version 2)
Quarter: 2022Q4

REPORT INFORMATION
  Report Type: Report from Study
  Country: AU (occurrence: AU)
  Receive Date: 20221109
  Receipt Date: 20221115
  Transmission Date: 20230113
  Serious: No
  Sender: FDA-Public Use
  Company Number: AU-SAMSUNG BIOEPIS-SB-2022-25420

PATIENT
  Age: 80 Year
  Sex: Female

DRUGS (5)
  1. ETANERCEPT [Suspect]
     Active Substance: ETANERCEPT
     Indication: Rheumatoid arthritis
     Dosage: FROM 4.5 YEARS, DOSE: 50, ON TUESDAY
     Route: 065
     Dates: start: 20180130
  2. ETANERCEPT [Suspect]
     Active Substance: ETANERCEPT
     Indication: Anti-neutrophil cytoplasmic antibody positive vasculitis
     Dosage: UNKNOWN
     Route: 065
  3. ETANERCEPT [Suspect]
     Active Substance: ETANERCEPT
     Dosage: UNKNOWN
     Route: 065
  4. ETANERCEPT [Suspect]
     Active Substance: ETANERCEPT
     Dosage: UNKNOWN
     Route: 065
  5. CORTISONE [Suspect]
     Active Substance: CORTISONE
     Indication: Product used for unknown indication
     Dosage: UNKNOWN
     Route: 065

REACTIONS (12)
  - Injection site pain [Recovered/Resolved]
  - Ill-defined disorder [Not Recovered/Not Resolved]
  - Wrong technique in product usage process [Unknown]
  - Device issue [Unknown]
  - Product leakage [Unknown]
  - Incorrect dose administered [Unknown]
  - COVID-19 [Unknown]
  - Fear of disease [Unknown]
  - Malaise [Unknown]
  - Dizziness [Unknown]
  - Headache [Unknown]
  - Product use in unapproved indication [Unknown]

NARRATIVE: CASE EVENT DATE: 20221004
